FAERS Safety Report 5954125-X (Version None)
Quarter: 2008Q4

REPORT INFORMATION
  Report Type: 
  Country: None (occurrence: None)
  Receive Date: 20081113
  Receipt Date: 20081113
  Transmission Date: 20090506
  Serious: Yes (Hospitalization)
  Sender: FDA-Public Use
  Company Number: None

PATIENT
  Age: 61 Year
  Sex: Female
  Weight: 106 kg

DRUGS (14)
  1. CYMBALTA [Suspect]
     Dosage: 60MG DAILY ORAL
     Route: 048
  2. WARFARIN SODIUM [Concomitant]
  3. VIT K [Concomitant]
  4. SITAGLIPTIN [Concomitant]
  5. CARVEDILOL [Concomitant]
  6. INSULIN [Concomitant]
  7. DILTIAZEM HCL [Concomitant]
  8. OMEPRAZOLE [Concomitant]
  9. CYCLOBENZAPRINE HCL [Concomitant]
  10. METHOTREXATE [Concomitant]
  11. ENALAPRIL MALEATE [Concomitant]
  12. DIGOXIN [Concomitant]
  13. CELECOXIB [Concomitant]
  14. SULFASALAZINE [Concomitant]

REACTIONS (3)
  - CONTUSION [None]
  - INTERNATIONAL NORMALISED RATIO INCREASED [None]
  - MELAENA [None]
